FAERS Safety Report 6525914-8 (Version None)
Quarter: 2009Q4

REPORT INFORMATION
  Report Type: 
  Country: None (occurrence: None)
  Receive Date: 20091222
  Receipt Date: 20091208
  Transmission Date: 20100525
  Serious: Yes (Other)
  Sender: FDA-Public Use
  Company Number: 2009SP003069

PATIENT
  Age: 46 Year
  Sex: Male

DRUGS (3)
  1. OMNARIS [Suspect]
     Indication: RHINITIS
     Dosage: 200 UG; QD; NASAL
     Route: 045
  2. MICARDIS [Concomitant]
  3. CRESTOR /01588602/ [Concomitant]

REACTIONS (2)
  - CHORIORETINOPATHY [None]
  - STRESS [None]
